FAERS Safety Report 17458352 (Version 2)
Quarter: 2020Q3

REPORT INFORMATION
  Report Type: Report from Study
  Country: US (occurrence: US)
  Receive Date: 20200225
  Receipt Date: 20200713
  Transmission Date: 20201102
  Serious: Yes (Hospitalization)
  Sender: FDA-Public Use
  Company Number: US-JNJFOC-20200223525

PATIENT
  Age: 19 Year
  Sex: Male
  Weight: 58.6 kg

DRUGS (1)
  1. ERDAFITINIB. [Suspect]
     Active Substance: ERDAFITINIB
     Indication: CENTRAL NERVOUS SYSTEM NEOPLASM
     Dosage: CYCLE 6 WAS ADMINISTERED FROM 04?SEP?2019 TO 28?SEP?2019 FOR A TOTAL DOSE OF 125 MG.
     Route: 048
     Dates: start: 20190408

REACTIONS (1)
  - Haemorrhage intracranial [Recovering/Resolving]

NARRATIVE: CASE EVENT DATE: 20190930
